FAERS Safety Report 8007476-1 (Version None)
Quarter: 2011Q4

REPORT INFORMATION
  Report Type: 
  Country: None (occurrence: None)
  Receive Date: 20111123
  Receipt Date: 20110909
  Transmission Date: 20120403
  Serious: No
  Sender: FDA-Public Use
  Company Number: 336692

PATIENT
  Age: 67 Year
  Sex: Female

DRUGS (1)
  1. VICTOZA [Suspect]
     Indication: TYPE 2 DIABETES MELLITUS
     Dosage: 0.6 MG,QD,SUBCUTANEOUS
     Route: 058
     Dates: start: 20110906

REACTIONS (10)
  - NAUSEA [None]
  - ABDOMINAL DISCOMFORT [None]
  - MUSCLE SPASMS [None]
  - ASTHENIA [None]
  - DIARRHOEA HAEMORRHAGIC [None]
  - FAECAL INCONTINENCE [None]
  - DEHYDRATION [None]
  - WEIGHT DECREASED [None]
  - COUGH [None]
  - THIRST [None]
